FAERS Safety Report 7493386-5 (Version None)
Quarter: 2011Q2

REPORT INFORMATION
  Report Type: 
  Country: None (occurrence: None)
  Receive Date: 20110516
  Receipt Date: 20110516
  Transmission Date: 20111010
  Serious: Yes (Other)
  Sender: FDA-Public Use
  Company Number: None

PATIENT
  Age: 54 Year
  Sex: Female
  Weight: 82 kg

DRUGS (2)
  1. DOCETAXEL [Suspect]
  2. DOCETAXEL [Suspect]
     Indication: LEIOMYOSARCOMA
     Dosage: 96.6 X1 IV
     Route: 042

REACTIONS (1)
  - INFUSION RELATED REACTION [None]
